FAERS Safety Report 6086400-5 (Version None)
Quarter: 2009Q1

REPORT INFORMATION
  Report Type: 
  Country: None (occurrence: None)
  Receive Date: 20090217
  Receipt Date: 20090202
  Transmission Date: 20090719
  Serious: Yes (Death)
  Sender: FDA-Public Use
  Company Number: CHPA2009US01809

PATIENT
  Age: 32 Year
  Sex: Male

DRUGS (8)
  1. DIPHENHYDRAMINE HCL [Suspect]
     Dosage: ORAL
     Route: 048
  2. MARIJUANA (CANNABIS, CANNABIS SATIVA) [Suspect]
     Dosage: ORAL
     Route: 048
  3. LITHIUM (LITHIUM) [Suspect]
     Dosage: ORAL
     Route: 048
  4. SERTRALINE [Suspect]
     Dosage: ORAL
     Route: 048
  5. QUETIAPINE FUMARATE [Suspect]
     Dosage: ORAL
     Route: 048
  6. METHADONE HCL [Suspect]
     Dosage: ORAL
     Route: 048
  7. ACETAMINOPHEN AND HYDROCODONE BITARTRATE [Suspect]
     Dosage: ORAL
     Route: 048
  8. CLONAZEPAM [Suspect]
     Dosage: ORAL
     Route: 048

REACTIONS (3)
  - CARDIAC ARREST [None]
  - COMPLETED SUICIDE [None]
  - RESPIRATORY ARREST [None]
